FAERS Safety Report 5572967-X (Version None)
Quarter: 2007Q4

REPORT INFORMATION
  Report Type: 
  Country: None (occurrence: None)
  Receive Date: 20071224
  Receipt Date: 20071219
  Transmission Date: 20080405
  Serious: Yes (Death, Hospitalization, Disabling, Other)
  Sender: FDA-Public Use
  Company Number: FR-BRISTOL-MYERS SQUIBB COMPANY-13955661

PATIENT
  Age: 80 Year
  Sex: Female

DRUGS (5)
  1. AMIKLIN [Suspect]
     Indication: PSEUDOMONAS INFECTION
     Route: 042
     Dates: start: 20070921, end: 20070926
  2. HEPARIN [Concomitant]
     Dates: start: 20070908
  3. NEURONTIN [Concomitant]
     Indication: PAIN
     Dates: start: 20070920
  4. LAROXYL [Concomitant]
     Indication: PAIN
     Dates: start: 20070920
  5. TAZOCILLINE [Concomitant]
     Indication: PSEUDOMONAS INFECTION
     Dates: start: 20070921

REACTIONS (4)
  - DEAFNESS NEUROSENSORY [None]
  - DEATH [None]
  - MULTI-ORGAN FAILURE [None]
  - TINNITUS [None]
